FAERS Safety Report 15035877 (Version 1)
Quarter: 2018Q2

REPORT INFORMATION
  Report Type: Spontaneous
  Country: US (occurrence: US)
  Receive Date: 20180530
  Receipt Date: 20180530
  Transmission Date: 20180711
  Serious: No
  Sender: FDA-Public Use
  Company Number: None

PATIENT
  Age: 54 Year
  Sex: Male

DRUGS (1)
  1. TALTZ [Suspect]
     Active Substance: IXEKIZUMAB

REACTIONS (4)
  - Psoriasis [None]
  - Disease progression [None]
  - Drug effect decreased [None]
  - Arthralgia [None]

NARRATIVE: CASE EVENT DATE: 20180427
